FAERS Safety Report 4803828-9 (Version None)
Quarter: 2005Q3

REPORT INFORMATION
  Report Type: 
  Country: None (occurrence: None)
  Receive Date: 20050920
  Receipt Date: 20050621
  Transmission Date: 20060218
  Serious: No
  Sender: FDA-Public Use
  Company Number: US-YAMANOUCHI-YPA20050253

PATIENT
  Age: 38 Year
  Sex: Female
  Weight: 85.9566 kg

DRUGS (1)
  1. VESICARE [Suspect]

REACTIONS (1)
  - URINARY RETENTION [None]
